FAERS Safety Report 11105855 (Version 1)
Quarter: 2015Q2

REPORT INFORMATION
  Report Type: Spontaneous
  Country: US (occurrence: None)
  Receive Date: 20150508
  Receipt Date: 20150508
  Transmission Date: 20150821
  Serious: Yes (Hospitalization, Other)
  Sender: FDA-Public Use
  Company Number: None

PATIENT
  Age: 47 Year
  Sex: Female
  Weight: 86.18 kg

DRUGS (1)
  1. MIRAPEX [Suspect]
     Active Substance: PRAMIPEXOLE DIHYDROCHLORIDE
     Indication: RESTLESS LEGS SYNDROME

REACTIONS (10)
  - Anxiety [None]
  - Withdrawal syndrome [None]
  - Impaired driving ability [None]
  - Divorced [None]
  - Loss of employment [None]
  - Abnormal behaviour [None]
  - Activities of daily living impaired [None]
  - Obsessive-compulsive disorder [None]
  - Weight increased [None]
  - Depression [None]
